FAERS Safety Report 7834003-1 (Version None)
Quarter: 2011Q4

REPORT INFORMATION
  Report Type: 
  Country: None (occurrence: None)
  Receive Date: 20111020
  Receipt Date: 20111006
  Transmission Date: 20120403
  Serious: Yes (Death, Life-Threatening, Hospitalization, Other)
  Sender: FDA-Public Use
  Company Number: 2011MA014924

PATIENT
  Age: 59 Year
  Sex: Male

DRUGS (6)
  1. BENDROFLUMETHIAZIDE [Concomitant]
  2. AMITRIPTYLINE HCL [Concomitant]
  3. ALPRAZOLAM [Concomitant]
  4. MIRTAZAPINE [Suspect]
     Dosage: 60 MG; QD
  5. ATENOLOL [Concomitant]
  6. ISOSORBIDE MONONITRATE [Concomitant]

REACTIONS (10)
  - TOXICITY TO VARIOUS AGENTS [None]
  - HEART RATE INCREASED [None]
  - DEPRESSED LEVEL OF CONSCIOUSNESS [None]
  - SEROTONIN SYNDROME [None]
  - HYPERTHERMIA [None]
  - BODY TEMPERATURE INCREASED [None]
  - METABOLIC ACIDOSIS [None]
  - MULTI-ORGAN FAILURE [None]
  - DISSEMINATED INTRAVASCULAR COAGULATION [None]
  - HEPATIC ENZYME INCREASED [None]
